FAERS Safety Report 14577737 (Version 1)
Quarter: 2018Q1

REPORT INFORMATION
  Report Type: Spontaneous
  Country: DE (occurrence: DE)
  Receive Date: 20180227
  Receipt Date: 20180227
  Transmission Date: 20180509
  Serious: Yes (Life-Threatening, Hospitalization, Disabling, Other)
  Sender: FDA-Public Use
  Company Number: DE-PFIZER INC-2018079368

PATIENT
  Age: 68 Year
  Sex: Male
  Weight: 90 kg

DRUGS (2)
  1. UNACID (AMPICILLIN SODIUM, SULBACTAM SODIUM) [Suspect]
     Active Substance: AMPICILLIN SODIUM\SULBACTAM SODIUM
     Indication: INFECTION
     Dosage: 3 G, DAILY (DAILY DOSE: 3 G GRAM(S) EVERY TOTAL (SHORT INFUSION)
     Route: 042
  2. NOVALGIN (METAMIZOLE SODIUM) [Suspect]
     Active Substance: METAMIZOLE SODIUM
     Indication: PAIN
     Dosage: 1 G, DAILY (DAILY DOSE: 1 G GRAM(S) EVERY TOTAL (SHORT INFUSION)
     Route: 042

REACTIONS (6)
  - Hypoxia [Recovering/Resolving]
  - Transcription medication error [Recovering/Resolving]
  - Dyspnoea [Recovering/Resolving]
  - Bronchospasm [Recovering/Resolving]
  - Documented hypersensitivity to administered product [Recovering/Resolving]
  - Cardiac arrest [Recovering/Resolving]

NARRATIVE: CASE EVENT DATE: 20180116
